FAERS Safety Report 7773562-4 (Version None)
Quarter: 2011Q3

REPORT INFORMATION
  Report Type: 
  Country: None (occurrence: None)
  Receive Date: 20110922
  Receipt Date: 20110919
  Transmission Date: 20111222
  Serious: Yes (Other)
  Sender: FDA-Public Use
  Company Number: US-CEPHALON-US025350

PATIENT
  Sex: Male

DRUGS (2)
  1. OXYCONTIN [Concomitant]
     Indication: PAIN
     Dates: start: 20040101
  2. FENTORA [Suspect]
     Indication: PAIN
     Route: 002
     Dates: start: 20080101

REACTIONS (2)
  - TOOTH DISORDER [None]
  - DRUG PRESCRIBING ERROR [None]
